FAERS Safety Report 16943317 (Version 2)
Quarter: 2019Q4

REPORT INFORMATION
  Report Type: Spontaneous
  Country: IT (occurrence: IT)
  Receive Date: 20191022
  Receipt Date: 20191106
  Transmission Date: 20200122
  Serious: Yes (Other)
  Sender: FDA-Public Use
  Company Number: IT-SA-2019SA285661

PATIENT
  Age: 73 Year
  Sex: Male

DRUGS (4)
  1. IRINOTECAN [Suspect]
     Active Substance: IRINOTECAN
     Indication: ADENOCARCINOMA GASTRIC
     Dosage: UNK UNK, QCY
     Route: 065
     Dates: start: 2018, end: 2018
  2. DOCETAXEL. [Suspect]
     Active Substance: DOCETAXEL
     Indication: ADENOCARCINOMA GASTRIC
     Dosage: UNK UNK, QCY
     Route: 065
     Dates: start: 2018, end: 2018
  3. OXALIPLATIN. [Suspect]
     Active Substance: OXALIPLATIN
     Indication: ADENOCARCINOMA GASTRIC
     Dosage: UNK, QCY
     Route: 065
     Dates: start: 2018, end: 2018
  4. FOLINIC ACID [Suspect]
     Active Substance: LEUCOVORIN
     Indication: ADENOCARCINOMA GASTRIC
     Dosage: UNK UNK, QCY
     Route: 065
     Dates: start: 2018, end: 2018

REACTIONS (1)
  - Transdifferentiation of neoplasm [Recovered/Resolved]

NARRATIVE: CASE EVENT DATE: 201810
